FAERS Safety Report 23615172 (Version 2)
Quarter: 2024Q1

REPORT INFORMATION
  Report Type: Spontaneous
  Country: US (occurrence: US)
  Receive Date: 20240311
  Receipt Date: 20240319
  Transmission Date: 20240410
  Serious: No
  Sender: FDA-Public Use
  Company Number: US-JNJFOC-20240273450

PATIENT
  Age: 76 Year
  Sex: Female

DRUGS (2)
  1. RYBREVANT [Suspect]
     Active Substance: AMIVANTAMAB-VMJW
     Indication: Non-small cell lung cancer
     Route: 042
     Dates: start: 20240222, end: 20240222
  2. COBAMAMIDE [Concomitant]
     Active Substance: COBAMAMIDE
     Route: 058

REACTIONS (5)
  - Infusion related reaction [Recovered/Resolved]
  - Dyspnoea [Unknown]
  - Back pain [Unknown]
  - Cough [Unknown]
  - Off label use [Unknown]

NARRATIVE: CASE EVENT DATE: 20240222
